FAERS Safety Report 4784729-1 (Version None)
Quarter: 2005Q3

REPORT INFORMATION
  Report Type: 
  Country: None (occurrence: None)
  Receive Date: 20050930
  Receipt Date: 20050909
  Transmission Date: 20060218
  Serious: Yes (Other)
  Sender: FDA-Public Use
  Company Number: JP-ROCHE-417100

PATIENT
  Age: 63 Year
  Sex: Male

DRUGS (11)
  1. PANALDINE [Suspect]
     Indication: THROMBOSIS PROPHYLAXIS
     Dosage: SECONDARY INDICATIONS OF PERCUTAENOUS CORONARY INTERVENTION WITH STENTING, ACUTE MYOCARDIAL INFARCT+
     Route: 048
     Dates: start: 20050724, end: 20050823
  2. DIOVAN [Concomitant]
     Indication: HYPERTENSION
     Route: 048
     Dates: start: 20050724
  3. ZANTAC [Concomitant]
     Indication: GASTRITIS
     Route: 048
     Dates: start: 20050724, end: 20050819
  4. LOXONIN [Concomitant]
     Indication: UPPER RESPIRATORY TRACT INFECTION
     Route: 048
     Dates: start: 20050817, end: 20050822
  5. ASPIRIN [Concomitant]
     Indication: ACUTE MYOCARDIAL INFARCTION
     Route: 048
     Dates: start: 20050724
  6. LAXOBERON [Concomitant]
     Indication: CONSTIPATION
     Route: 048
     Dates: start: 20050724
  7. LENDORMIN [Concomitant]
     Indication: INSOMNIA
     Dosage: LENDORMIN D.
     Route: 048
     Dates: start: 20050724
  8. LIPITOR [Concomitant]
     Indication: HYPERLIPIDAEMIA
     Route: 048
     Dates: start: 20050724
  9. TAKEPRON [Concomitant]
     Indication: GASTRITIS
     Route: 048
     Dates: start: 20050819
  10. FLOMOX [Concomitant]
     Indication: UPPER RESPIRATORY TRACT INFECTION
     Route: 048
     Dates: start: 20050820, end: 20050823
  11. COLDRIN [Concomitant]
     Indication: UPPER RESPIRATORY TRACT INFECTION
     Route: 048
     Dates: start: 20050820, end: 20050823

REACTIONS (6)
  - DECREASED APPETITE [None]
  - HAEMORRHAGIC DIATHESIS [None]
  - PYREXIA [None]
  - STOMACH DISCOMFORT [None]
  - THROMBOCYTOPENIA [None]
  - THROMBOTIC THROMBOCYTOPENIC PURPURA [None]
